FAERS Safety Report 19204738 (Version 1)
Quarter: 2021Q2

REPORT INFORMATION
  Report Type: Report from Study
  Country: FR (occurrence: FR)
  Receive Date: 20210503
  Receipt Date: 20210503
  Transmission Date: 20210717
  Serious: Yes (Death)
  Sender: FDA-Public Use
  Company Number: FR-ELI_LILLY_AND_COMPANY-FR202104012164

PATIENT

DRUGS (2)
  1. PEMETREXED. [Suspect]
     Active Substance: PEMETREXED
     Indication: METASTATIC NEOPLASM
     Dosage: UNK UNK, CYCLICAL
     Route: 042
  2. OXALIPLATIN. [Concomitant]
     Active Substance: OXALIPLATIN
     Indication: METASTATIC NEOPLASM
     Dosage: UNK UNK, CYCLICAL
     Route: 042

REACTIONS (1)
  - Toxicity to various agents [Fatal]
